FAERS Safety Report 24823242 (Version 1)
Quarter: 2025Q1

REPORT INFORMATION
  Report Type: Report from Study
  Country: US (occurrence: US)
  Receive Date: 20250109
  Receipt Date: 20250109
  Transmission Date: 20250409
  Serious: Yes (Hospitalization)
  Sender: ROCHE
  Company Number: US-ROCHE-10000162519

PATIENT
  Age: 56 Year
  Sex: Female
  Weight: 131.54 kg

DRUGS (17)
  1. OCREVUS [Suspect]
     Active Substance: OCRELIZUMAB
     Indication: Relapsing multiple sclerosis
     Dosage: DATES OF TREATMENT: 06/OCT/2021, 21/OCT/2021, 20/OCT/2022, 13/APR/2023, 25/OCT/2023, 22/APR/2024.
     Route: 042
     Dates: start: 2021
  2. OCREVUS [Suspect]
     Active Substance: OCRELIZUMAB
     Indication: Chemotherapy
  3. ATENOLOL [Concomitant]
     Active Substance: ATENOLOL
     Route: 048
  4. ATORVASTATIN CALCIUM [Concomitant]
     Active Substance: ATORVASTATIN CALCIUM
     Route: 048
  5. VALSARTAN [Concomitant]
     Active Substance: VALSARTAN
     Route: 048
  6. TRAZODONE HCL [Concomitant]
     Active Substance: TRAZODONE HYDROCHLORIDE
     Route: 048
  7. SERTRALINE HYDROCHLORIDE [Concomitant]
     Active Substance: SERTRALINE HYDROCHLORIDE
     Route: 048
  8. ONDANSETRON [Concomitant]
     Active Substance: ONDANSETRON
     Route: 060
  9. LOSARTAN POTASSIUM [Concomitant]
     Active Substance: LOSARTAN POTASSIUM
     Route: 048
  10. DIPHENHYDRAMINE [Concomitant]
     Active Substance: DIPHENHYDRAMINE
  11. SOLU-MEDROL [Concomitant]
     Active Substance: METHYLPREDNISOLONE SODIUM SUCCINATE
  12. ACTOS [Concomitant]
     Active Substance: PIOGLITAZONE HYDROCHLORIDE
  13. AMLODIPINE [Concomitant]
     Active Substance: AMLODIPINE BESYLATE
  14. ATENOLOL [Concomitant]
     Active Substance: ATENOLOL
  15. ATORVASTATIN [Concomitant]
     Active Substance: ATORVASTATIN
  16. CLONAZEPAM [Concomitant]
     Active Substance: CLONAZEPAM
  17. INSULIN HUMAN [Concomitant]
     Active Substance: INSULIN HUMAN

REACTIONS (15)
  - White blood cell count increased [Unknown]
  - Neutrophil count increased [Unknown]
  - Off label use [Unknown]
  - Multiple sclerosis [Unknown]
  - Depression [Unknown]
  - COVID-19 [Unknown]
  - Renal impairment [Unknown]
  - Peripheral coldness [Unknown]
  - Pain [Unknown]
  - Hyperlipidaemia [Unknown]
  - Paraesthesia [Unknown]
  - Asthenia [Unknown]
  - Weight increased [Unknown]
  - Illness [Unknown]
  - Dehydration [Unknown]
